FAERS Safety Report 4263807-X (Version None)
Quarter: 2004Q1

REPORT INFORMATION
  Report Type: 
  Country: None (occurrence: None)
  Receive Date: 20040102
  Receipt Date: 20031217
  Transmission Date: 20041129
  Serious: Yes (Hospitalization, Other)
  Sender: FDA-Public Use
  Company Number: USA031254871

PATIENT
  Age: 59 Year
  Sex: Female
  Weight: 73 kg

DRUGS (2)
  1. HUMULIN N [Suspect]
     Dosage: 25 U/DAYS
     Dates: start: 19950101
  2. HUMULIN R [Suspect]
     Dosage: 15 U/DAY
     Dates: start: 19950101

REACTIONS (5)
  - CEREBROVASCULAR ACCIDENT [None]
  - HEMIPARESIS [None]
  - HYPOGEUSIA [None]
  - PAROSMIA [None]
  - SKIN ODOUR ABNORMAL [None]
